FAERS Safety Report 20855531 (Version 1)
Quarter: 2022Q2

REPORT INFORMATION
  Report Type: Report from Study
  Country: US (occurrence: US)
  Receive Date: 20220520
  Receipt Date: 20220520
  Transmission Date: 20220721
  Serious: Yes (Other)
  Sender: FDA-Public Use
  Company Number: US-JNJFOC-20211139142

PATIENT
  Age: 63 Year
  Sex: Female

DRUGS (3)
  1. MACITENTAN [Suspect]
     Active Substance: MACITENTAN
     Indication: Pulmonary arterial hypertension
     Route: 048
     Dates: start: 202111, end: 202202
  2. MACITENTAN [Suspect]
     Active Substance: MACITENTAN
     Route: 048
     Dates: start: 2022, end: 202203
  3. MACITENTAN [Suspect]
     Active Substance: MACITENTAN
     Route: 048
     Dates: start: 202203, end: 202203

REACTIONS (14)
  - Systemic lupus erythematosus [Recovered/Resolved]
  - Malaise [Recovered/Resolved]
  - Therapeutic response decreased [Unknown]
  - Dyspnoea [Not Recovered/Not Resolved]
  - Pain in extremity [Not Recovered/Not Resolved]
  - Pain in extremity [Not Recovered/Not Resolved]
  - Oxygen saturation decreased [Not Recovered/Not Resolved]
  - Swelling [Recovered/Resolved]
  - Weight decreased [Unknown]
  - Pain [Not Recovered/Not Resolved]
  - Fear [Unknown]
  - General physical condition abnormal [Recovered/Resolved]
  - Arthritis [Recovered/Resolved]
  - Peripheral swelling [Recovered/Resolved]

NARRATIVE: CASE EVENT DATE: 20210101
